FAERS Safety Report 12676037 (Version 3)
Quarter: 2016Q3

REPORT INFORMATION
  Report Type: Report from Study
  Country: US (occurrence: US)
  Receive Date: 20160823
  Receipt Date: 20160926
  Transmission Date: 20161109
  Serious: Yes (Other)
  Sender: FDA-Public Use
  Company Number: US-ROCHE-1817096

PATIENT
  Sex: Female

DRUGS (1)
  1. NUTROPIN AQ [Suspect]
     Active Substance: SOMATROPIN
     Indication: PRODUCT USED FOR UNKNOWN INDICATION
     Dosage: NUSPIN 10 MG PEN (5 MG/ML)
     Route: 058

REACTIONS (7)
  - Fatigue [Not Recovered/Not Resolved]
  - Swollen tongue [Recovered/Resolved with Sequelae]
  - Product quality issue [Unknown]
  - Lip swelling [Recovered/Resolved with Sequelae]
  - Peripheral swelling [Recovered/Resolved with Sequelae]
  - Incorrect dose administered [Unknown]
  - Expired device used [Unknown]
